FAERS Safety Report 6290105-5 (Version None)
Quarter: 2009Q3

REPORT INFORMATION
  Report Type: 
  Country: None (occurrence: None)
  Receive Date: 20090730
  Receipt Date: 20090305
  Transmission Date: 20100115
  Serious: Yes (Other)
  Sender: FDA-Public Use
  Company Number: US-BRISTOL-MYERS SQUIBB COMPANY-14413868

PATIENT
  Age: 69 Year
  Sex: Male

DRUGS (4)
  1. COUMADIN [Suspect]
     Route: 065
  2. PLAVIX [Suspect]
     Indication: CARDIAC OPERATION
     Dosage: STRENGTH 75MG EVERY MORNING ABOUT FOUR TO FIVE YEARS
     Route: 048
     Dates: start: 20030101
  3. ASPIRIN [Suspect]
     Dosage: STRENGTH 81MG, EVERY NIGHT.
  4. DIOVAN [Concomitant]
     Route: 065

REACTIONS (2)
  - CEREBROVASCULAR ACCIDENT [None]
  - CONTUSION [None]
